FAERS Safety Report 5565588-6 (Version None)
Quarter: 2007Q4

REPORT INFORMATION
  Report Type: 
  Country: None (occurrence: None)
  Receive Date: 20071218
  Receipt Date: 20071211
  Transmission Date: 20080405
  Serious: Yes (Other)
  Sender: FDA-Public Use
  Company Number: US-PFIZER INC-2007104507

PATIENT
  Sex: Male
  Weight: 16.3 kg

DRUGS (4)
  1. ZYRTEC [Suspect]
     Indication: PRURITUS
     Route: 048
     Dates: start: 20070101, end: 20071201
  2. URSODIOL [Concomitant]
  3. VITAMINS [Concomitant]
  4. FLINTSTONES MULTIPLE VITAMINS [Concomitant]

REACTIONS (2)
  - BLOOD CHOLESTEROL INCREASED [None]
  - HEPATOTOXICITY [None]
